FAERS Safety Report 6728204-3 (Version None)
Quarter: 2010Q2

REPORT INFORMATION
  Report Type: 
  Country: None (occurrence: None)
  Receive Date: 20100517
  Receipt Date: 20100511
  Transmission Date: 20101027
  Serious: Yes (Hospitalization)
  Sender: FDA-Public Use
  Company Number: B0653041A

PATIENT
  Age: 76 Year
  Sex: Female

DRUGS (2)
  1. TYVERB [Suspect]
     Dosage: 1250MG PER DAY
     Route: 048
  2. LETROZOLE [Concomitant]
     Dosage: 2.5MG PER DAY
     Route: 065

REACTIONS (2)
  - DEHYDRATION [None]
  - DIARRHOEA [None]
